FAERS Safety Report 12706266 (Version 4)
Quarter: 2016Q3

REPORT INFORMATION
  Report Type: Spontaneous
  Country: IT (occurrence: IT)
  Receive Date: 20160901
  Receipt Date: 20160920
  Transmission Date: 20161109
  Serious: Yes (Hospitalization, Other)
  Sender: FDA-Public Use
  Company Number: IT-ROCHE-1823586

PATIENT
  Age: 70 Year
  Sex: Female

DRUGS (2)
  1. DELTACORTENE [Concomitant]
     Active Substance: PREDNISONE
     Indication: IDIOPATHIC PULMONARY FIBROSIS
     Dosage: 10 TABLETS
     Route: 048
     Dates: start: 20160823, end: 20160828
  2. ESBRIET [Suspect]
     Active Substance: PIRFENIDONE
     Indication: IDIOPATHIC PULMONARY FIBROSIS
     Dosage: 267 MG BLISTER PACK 63 (1X21 AND 1X42) CAPSULES.
     Route: 048
     Dates: start: 20160828, end: 20160828

REACTIONS (4)
  - Malaise [Recovered/Resolved]
  - Arthralgia [Recovered/Resolved]
  - Dyspnoea [Recovered/Resolved]
  - Urticaria [Recovered/Resolved]

NARRATIVE: CASE EVENT DATE: 20160828
